FAERS Safety Report 5048553-7 (Version None)
Quarter: 2006Q3

REPORT INFORMATION
  Report Type: 
  Country: None (occurrence: None)
  Receive Date: 20060712
  Receipt Date: 20060630
  Transmission Date: 20061208
  Serious: Yes (Hospitalization)
  Sender: FDA-Public Use
  Company Number: 2006AP03056

PATIENT
  Age: 25673 Day
  Sex: Female

DRUGS (11)
  1. NOLVADEX [Suspect]
     Indication: BREAST CANCER
     Route: 048
     Dates: start: 20020327, end: 20051215
  2. ARIMIDEX [Suspect]
     Indication: BREAST CANCER
     Route: 048
     Dates: start: 20051216, end: 20060624
  3. AMOBAN [Concomitant]
     Indication: CONSTIPATION
     Route: 048
     Dates: start: 20020311
  4. AMOBAN [Concomitant]
     Indication: INSOMNIA
     Route: 048
     Dates: start: 20020311
  5. AMOBAN [Concomitant]
     Route: 048
     Dates: start: 20020621
  6. AMOBAN [Concomitant]
     Route: 048
     Dates: start: 20020621
  7. ASPARA-CA [Concomitant]
     Indication: OSTEOPOROSIS
     Route: 048
     Dates: start: 20020311
  8. LOXOPROFEN [Concomitant]
     Indication: CHEST PAIN
     Route: 048
     Dates: start: 20050407
  9. MARZULENE [Concomitant]
     Indication: GASTROINTESTINAL DISORDER
     Route: 048
     Dates: start: 20050407
  10. OPALMON [Concomitant]
     Indication: SPINAL COLUMN STENOSIS
     Route: 048
     Dates: start: 20051001
  11. CYANOCOBALAMIN [Concomitant]
     Indication: SPINAL COLUMN STENOSIS
     Route: 048
     Dates: start: 20051001

REACTIONS (1)
  - CEREBRAL INFARCTION [None]
